FAERS Safety Report 4354926-8 (Version None)
Quarter: 2004Q2

REPORT INFORMATION
  Report Type: 
  Country: None (occurrence: None)
  Receive Date: 20040510
  Receipt Date: 20040323
  Transmission Date: 20050107
  Serious: Yes (Hospitalization)
  Sender: FDA-Public Use
  Company Number: PHRM2004FR01346

PATIENT
  Age: 59 Year
  Sex: Male
  Weight: 115 kg

DRUGS (4)
  1. LESCOL [Suspect]
     Indication: HYPERCHOLESTEROLAEMIA
     Dosage: 80 MG, QD
     Route: 048
     Dates: start: 20031017, end: 20040314
  2. ALLOPURINOL TAB [Concomitant]
     Indication: HYPERURICAEMIA
     Dosage: 100 MG DAILY
     Route: 048
     Dates: start: 19981204
  3. COAPROVEL [Concomitant]
     Indication: HYPERTENSION
     Dosage: 300 MG DAILY
     Route: 048
     Dates: start: 20001024
  4. VASTAREL [Concomitant]
     Indication: TINNITUS
     Dosage: 70 MG PER DAY
     Route: 048
     Dates: start: 20020301

REACTIONS (10)
  - BLOOD CREATINE PHOSPHOKINASE INCREASED [None]
  - BLOOD LACTATE DEHYDROGENASE INCREASED [None]
  - BUNDLE BRANCH BLOCK LEFT [None]
  - BUNDLE BRANCH BLOCK RIGHT [None]
  - DIZZINESS [None]
  - LOSS OF CONSCIOUSNESS [None]
  - MALAISE [None]
  - MUSCLE CRAMP [None]
  - PHOSPHENES [None]
  - RHABDOMYOLYSIS [None]
